FAERS Safety Report 18672309 (Version 1)
Quarter: 2020Q4

REPORT INFORMATION
  Report Type: Spontaneous
  Country: US (occurrence: US)
  Receive Date: 20201228
  Receipt Date: 20201228
  Transmission Date: 20210114
  Serious: Yes (Hospitalization, Other)
  Sender: FDA-Public Use
  Company Number: US-PURDUE-USA-2020-0178822

PATIENT
  Sex: Female

DRUGS (15)
  1. HYDROCODONE BITARTRATE AND ACETAMINOPHEN [Suspect]
     Active Substance: ACETAMINOPHEN\HYDROCODONE BITARTRATE
     Indication: PRODUCT USED FOR UNKNOWN INDICATION
     Dosage: UNKNOWN
     Route: 048
  2. ABILIFY [Suspect]
     Active Substance: ARIPIPRAZOLE
     Dosage: 30 MG, BID
     Route: 048
  3. AMBIEN CR [Suspect]
     Active Substance: ZOLPIDEM TARTRATE
     Dosage: ONE AND HALF TABLET, HS
     Route: 048
  4. OXYCODONE/ ACETAMINOPHEN TABLETS [Suspect]
     Active Substance: ACETAMINOPHEN\OXYCODONE HYDROCHLORIDE
     Indication: PRODUCT USED FOR UNKNOWN INDICATION
     Dosage: UNKNOWN
     Route: 048
  5. TRILEPTAL [Suspect]
     Active Substance: OXCARBAZEPINE
     Indication: PRODUCT USED FOR UNKNOWN INDICATION
     Dosage: 600 MG, BID
     Route: 048
  6. LAMICTAL [Suspect]
     Active Substance: LAMOTRIGINE
     Dosage: 150 MG, AM
     Route: 048
  7. COGENTIN [Suspect]
     Active Substance: BENZTROPINE MESYLATE
     Indication: PRODUCT USED FOR UNKNOWN INDICATION
     Dosage: 1 MG, DAILY
     Route: 048
  8. VICODIN [Suspect]
     Active Substance: ACETAMINOPHEN\HYDROCODONE BITARTRATE
     Indication: PRODUCT USED FOR UNKNOWN INDICATION
     Dosage: UNKNOWN
     Route: 048
  9. LAMICTAL [Suspect]
     Active Substance: LAMOTRIGINE
     Indication: PRODUCT USED FOR UNKNOWN INDICATION
     Dosage: 100 MG, UNK
     Route: 048
  10. AMBIEN [Suspect]
     Active Substance: ZOLPIDEM TARTRATE
     Indication: PRODUCT USED FOR UNKNOWN INDICATION
     Dosage: ONE AND HALF TABLET, DAILY
     Route: 048
  11. AMBIEN CR [Suspect]
     Active Substance: ZOLPIDEM TARTRATE
     Indication: PRODUCT USED FOR UNKNOWN INDICATION
     Dosage: 12.5 MG, HS
     Route: 048
  12. OXYCONTIN [Suspect]
     Active Substance: OXYCODONE HYDROCHLORIDE
     Indication: PRODUCT USED FOR UNKNOWN INDICATION
     Dosage: UNKNOWN
     Route: 048
  13. ABILIFY [Suspect]
     Active Substance: ARIPIPRAZOLE
     Indication: PRODUCT USED FOR UNKNOWN INDICATION
     Dosage: 40 MG, DAILY
     Route: 048
  14. COGENTIN [Suspect]
     Active Substance: BENZTROPINE MESYLATE
     Dosage: 1 MG, QD
     Route: 048
  15. TRAMADOL. [Suspect]
     Active Substance: TRAMADOL
     Indication: PRODUCT USED FOR UNKNOWN INDICATION
     Dosage: UNKNOWN
     Route: 048

REACTIONS (35)
  - Cognitive disorder [Unknown]
  - Insomnia [Unknown]
  - Drug dependence [Unknown]
  - Headache [Unknown]
  - Chills [Unknown]
  - Irritability [Unknown]
  - Panic attack [Unknown]
  - Apathy [Unknown]
  - Anger [Unknown]
  - Thinking abnormal [Unknown]
  - Overdose [Unknown]
  - Suicidal ideation [Unknown]
  - Anxiety [Unknown]
  - Bipolar disorder [Unknown]
  - Chest discomfort [Unknown]
  - Tachyphrenia [Unknown]
  - Agitation [Unknown]
  - Fatigue [Unknown]
  - Obsessive thoughts [Unknown]
  - Fear [Unknown]
  - Tremor [Unknown]
  - Bruxism [Unknown]
  - Drug hypersensitivity [Unknown]
  - Suicide attempt [Unknown]
  - Nightmare [Unknown]
  - Decreased appetite [Unknown]
  - Feeling abnormal [Unknown]
  - Hospitalisation [Unknown]
  - Dyspnoea [Unknown]
  - Arthritis [Unknown]
  - Stress [Unknown]
  - Disturbance in attention [Unknown]
  - Night sweats [Unknown]
  - Depression [Unknown]
  - Crying [Unknown]
